FAERS Safety Report 4750115-3 (Version None)
Quarter: 2005Q3

REPORT INFORMATION
  Report Type: 
  Country: None (occurrence: None)
  Receive Date: 20050819
  Receipt Date: 20050819
  Transmission Date: 20060218
  Serious: Yes (Other)
  Sender: FDA-Public Use
  Company Number: None

PATIENT
  Sex: Male
  Weight: 59 kg

DRUGS (4)
  1. FLUOROURACIL [Suspect]
     Indication: ADENOCARCINOMA
     Dosage: SEE IMAGE
     Dates: start: 20050802
  2. FLUOROURACIL [Suspect]
     Indication: GASTROOESOPHAGEAL CANCER
     Dosage: SEE IMAGE
     Dates: start: 20050802
  3. CISPLATIN [Suspect]
     Dosage: SEE IMAGE
     Dates: start: 20050802
  4. EPIRUBICIN [Suspect]
     Dosage: SEE IMAGE
     Dates: start: 20050802

REACTIONS (3)
  - DEHYDRATION [None]
  - DIARRHOEA [None]
  - WEIGHT DECREASED [None]
